FAERS Safety Report 23315185 (Version 1)
Quarter: 2023Q4

REPORT INFORMATION
  Report Type: Spontaneous
  Country: US (occurrence: US)
  Receive Date: 20231219
  Receipt Date: 20231219
  Transmission Date: 20240109
  Serious: No
  Sender: FDA-Public Use
  Company Number: US-ALKERMES INC.-ALK-2023-004567

PATIENT
  Sex: Female
  Weight: 111.11 kg

DRUGS (1)
  1. ARISTADA [Suspect]
     Active Substance: ARIPIPRAZOLE LAUROXIL
     Indication: Schizophrenia
     Dosage: 1064 MILLIGRAM, Q7WK
     Route: 030

REACTIONS (2)
  - Off label use [Not Recovered/Not Resolved]
  - Weight increased [Unknown]
